FAERS Safety Report 9782251 (Version 1)
Quarter: 2013Q4

REPORT INFORMATION
  Report Type: Spontaneous
  Country: HR (occurrence: HR)
  Receive Date: 20131226
  Receipt Date: 20131226
  Transmission Date: 20140711
  Serious: Yes (Other)
  Sender: FDA-Public Use
  Company Number: HR-TEVA-450594ISR

PATIENT
  Age: 50 Year
  Sex: Female
  Weight: 65 kg

DRUGS (1)
  1. QUAR [Suspect]
     Indication: ASTHMA
     Dosage: 200 MICROGRAM DAILY; PRESSURISED AEROSOLS
     Route: 055
     Dates: start: 20131121, end: 20131123

REACTIONS (3)
  - Erythema [Unknown]
  - Suffocation feeling [Unknown]
  - Dyspnoea [Unknown]
